FAERS Safety Report 8824399 (Version 3)
Quarter: 2013Q3

REPORT INFORMATION
  Report Type: Spontaneous
  Country: US (occurrence: US)
  Receive Date: 20121004
  Receipt Date: 20130722
  Transmission Date: 20140515
  Serious: Yes (Hospitalization)
  Sender: FDA-Public Use
  Company Number: US-BAYER-2012-102354

PATIENT
  Age: 30 Year
  Sex: Female
  Weight: 58.96 kg

DRUGS (4)
  1. YASMIN [Suspect]
     Dosage: UNK
     Dates: start: 2005, end: 2007
  2. YASMIN [Suspect]
     Dosage: UNK
     Dates: start: 2004, end: 2007
  3. MOTRIN [Concomitant]
     Indication: HEADACHE
     Dosage: 2 PILLS, PRN
  4. ADVIL [Concomitant]

REACTIONS (3)
  - Deep vein thrombosis [None]
  - Pain [None]
  - Pain [None]
